FAERS Safety Report 11131781 (Version 1)
Quarter: 2015Q2

REPORT INFORMATION
  Report Type: Spontaneous
  Country: US (occurrence: None)
  Receive Date: 20150521
  Receipt Date: 20150521
  Transmission Date: 20150821
  Serious: Yes (Disabling)
  Sender: FDA-Public Use
  Company Number: None

PATIENT
  Age: 44 Year
  Sex: Female
  Weight: 86.18 kg

DRUGS (4)
  1. METFORMIN [Concomitant]
     Active Substance: METFORMIN HYDROCHLORIDE
  2. DOTERRA ONGUARD FOAMING HANDSWASG [Concomitant]
     Active Substance: COSMETICS
  3. INVOKANA [Suspect]
     Active Substance: CANAGLIFLOZIN
     Indication: BLOOD GLUCOSE INCREASED
     Dosage: 1, ONCE DAILY, TAKEN BY MOUTH
     Route: 048
  4. DYAZIDE HCTZ [Concomitant]

REACTIONS (2)
  - Blood cholesterol increased [None]
  - Blood triglycerides increased [None]

NARRATIVE: CASE EVENT DATE: 20150511
